FAERS Safety Report 9445431 (Version 1)
Quarter: 2013Q3

REPORT INFORMATION
  Report Type: Spontaneous
  Country: US (occurrence: US)
  Receive Date: 20130807
  Receipt Date: 20130807
  Transmission Date: 20140515
  Serious: Yes (Hospitalization, Other)
  Sender: FDA-Public Use
  Company Number: US-WATSON-2013-13824

PATIENT
  Age: 88 Year
  Sex: Female
  Weight: 74 kg

DRUGS (5)
  1. NORCO (UNKNOWN) (WATSON LABORATORIES) [Suspect]
     Indication: HERPES ZOSTER
     Dosage: UNK, UNKNOWN
     Route: 065
  2. FAMCICLOVIR [Suspect]
     Indication: HERPES ZOSTER
     Dosage: 500 MG, UNKNOWN
     Route: 048
     Dates: start: 20130121, end: 20130128
  3. LYRICA [Suspect]
     Indication: HERPES ZOSTER
     Dosage: 50 UNK, UNK
     Route: 048
     Dates: start: 20130128, end: 20130131
  4. ACYCLOVIR /00587301/ [Suspect]
     Indication: PRODUCT USED FOR UNKNOWN INDICATION
     Dosage: UNK, UNKNOWN
     Route: 065
  5. SERTRALINE [Concomitant]
     Indication: PRODUCT USED FOR UNKNOWN INDICATION
     Dosage: UNK, UNKNOWN
     Route: 065

REACTIONS (6)
  - Convulsion [Unknown]
  - Drug interaction [Unknown]
  - Aura [Unknown]
  - Headache [Unknown]
  - Urinary incontinence [Unknown]
  - Faecal incontinence [Unknown]
